FAERS Safety Report 8357924-2 (Version None)
Quarter: 2012Q2

REPORT INFORMATION
  Report Type: 
  Country: None (occurrence: None)
  Receive Date: 20120514
  Receipt Date: 20120503
  Transmission Date: 20120825
  Serious: Yes (Hospitalization)
  Sender: FDA-Public Use
  Company Number: CA-JNJFOC-20120502008

PATIENT
  Sex: Male
  Weight: 71.8 kg

DRUGS (4)
  1. INDOMETHACIN [Concomitant]
     Route: 065
  2. REMICADE [Suspect]
     Dosage: 24TH INFUSION
     Route: 042
     Dates: start: 20120306
  3. REMICADE [Suspect]
     Indication: ANKYLOSING SPONDYLITIS
     Route: 042
     Dates: start: 20081030
  4. FLOMAX [Concomitant]
     Route: 065

REACTIONS (2)
  - HERPES ZOSTER [None]
  - NEPHROLITHIASIS [None]
